FAERS Safety Report 17974070 (Version 1)
Quarter: 2020Q3

REPORT INFORMATION
  Report Type: Spontaneous
  Country: BR (occurrence: BR)
  Receive Date: 20200702
  Receipt Date: 20200702
  Transmission Date: 20201103
  Serious: Yes (Hospitalization, Other)
  Sender: FDA-Public Use
  Company Number: BR-TORRENT-00005368

PATIENT
  Age: 17 Year
  Sex: Male
  Weight: 51 kg

DRUGS (3)
  1. TRILEPTAL [Concomitant]
     Active Substance: OXCARBAZEPINE
     Indication: PRODUCT USED FOR UNKNOWN INDICATION
     Dosage: UNKNOWN
     Route: 048
  2. LAMITOR [Suspect]
     Active Substance: LAMOTRIGINE
     Indication: INFANTILE SPASMS
     Dosage: 1 TAB IN THE MORNING, HALF TAB IN THE AFTERNOON AND 1 TAB AT NIGHT
     Route: 048
     Dates: end: 2018
  3. RISPERIDONE. [Suspect]
     Active Substance: RISPERIDONE
     Indication: BEHAVIOUR DISORDER
     Dosage: HALF TABLET IN THE MORNING AND HALF TABLET AT NIGHT
     Route: 048

REACTIONS (10)
  - Onychomadesis [Unknown]
  - Gastrointestinal infection [Recovered/Resolved]
  - Thermal burn [Unknown]
  - Metabolic disorder [Unknown]
  - Seizure [Unknown]
  - Wrong technique in product usage process [Unknown]
  - Stevens-Johnson syndrome [Recovered/Resolved]
  - Cardiac disorder [Unknown]
  - Skin exfoliation [Unknown]
  - Hypoglycaemia [Unknown]

NARRATIVE: CASE EVENT DATE: 20181223
